FAERS Safety Report 11353353 (Version 1)
Quarter: 2015Q3

REPORT INFORMATION
  Report Type: Spontaneous
  Country: US (occurrence: US)
  Receive Date: 20150807
  Receipt Date: 20150807
  Transmission Date: 20151125
  Serious: No
  Sender: FDA-Public Use
  Company Number: US-JNJFOC-20140903990

PATIENT
  Sex: Female
  Weight: 58.97 kg

DRUGS (3)
  1. MENS ROGAINE EXTRA STRENGTH [Suspect]
     Active Substance: MINOXIDIL
     Route: 061
  2. MENS ROGAINE EXTRA STRENGTH [Suspect]
     Active Substance: MINOXIDIL
     Indication: HAIR GROWTH ABNORMAL
     Dosage: EVERY OTHER DAY
     Route: 061
  3. BIOTENE (PASTE) [Concomitant]
     Active Substance: SODIUM MONOFLUOROPHOSPHATE
     Indication: ROUTINE HEALTH MAINTENANCE
     Route: 065

REACTIONS (5)
  - Wrong patient received medication [Unknown]
  - Pruritus [Unknown]
  - Alopecia [Not Recovered/Not Resolved]
  - Intentional product use issue [Unknown]
  - Incorrect dose administered [Unknown]
